FAERS Safety Report 10213651 (Version 1)
Quarter: 2014Q2

REPORT INFORMATION
  Report Type: Spontaneous
  Country: US (occurrence: None)
  Receive Date: 20140530
  Receipt Date: 20140530
  Transmission Date: 20141212
  Serious: Yes (Other)
  Sender: FDA-Public Use
  Company Number: C14 021 AE

PATIENT
  Age: 79 Year
  Sex: Female

DRUGS (1)
  1. FIRST OMEPRAZOLE RX [Suspect]
     Indication: OESOPHAGEAL DISORDER
     Dosage: 5ML BID?10 ML NOON?BY G-TUBE.
     Dates: start: 20140430, end: 20140505

REACTIONS (3)
  - Nausea [None]
  - Retching [None]
  - Retching [None]
